FAERS Safety Report 5616033-3 (Version None)
Quarter: 2008Q1

REPORT INFORMATION
  Report Type: 
  Country: None (occurrence: None)
  Receive Date: 20080206
  Receipt Date: 20080125
  Transmission Date: 20080703
  Serious: Yes (Other)
  Sender: FDA-Public Use
  Company Number: US-PFIZER INC-2007073104

PATIENT
  Sex: Female
  Weight: 59.9 kg

DRUGS (5)
  1. LYRICA [Suspect]
     Indication: NEUROPATHY PERIPHERAL
     Dates: start: 20070801, end: 20071015
  2. LYRICA [Suspect]
     Indication: FIBROMYALGIA
  3. SYNTHROID [Concomitant]
     Indication: THYROID DISORDER
  4. ZETIA [Concomitant]
  5. AMBIEN [Concomitant]
     Indication: INSOMNIA

REACTIONS (4)
  - ACTIVITIES OF DAILY LIVING IMPAIRED [None]
  - DISTURBANCE IN ATTENTION [None]
  - DIZZINESS [None]
  - VERTIGO [None]
